FAERS Safety Report 9417621 (Version 2)
Quarter: 2013Q4

REPORT INFORMATION
  Report Type: Spontaneous
  Country: US (occurrence: US)
  Receive Date: 20130724
  Receipt Date: 20131022
  Transmission Date: 20140711
  Serious: No
  Sender: FDA-Public Use
  Company Number: US-BRISTOL-MYERS SQUIBB COMPANY-18977488

PATIENT
  Age: 91 Year
  Sex: Female

DRUGS (6)
  1. ELIQUIS [Suspect]
     Indication: CEREBROVASCULAR ACCIDENT PROPHYLAXIS
     Route: 048
     Dates: start: 20130510, end: 20130512
  2. ALDACTONE [Concomitant]
  3. DIGOXIN [Concomitant]
  4. LISINOPRIL + HCTZ [Concomitant]
  5. LOPRESSOR [Concomitant]
  6. VITAMIN D [Concomitant]

REACTIONS (1)
  - Dizziness [Recovered/Resolved]
